FAERS Safety Report 5377511-8 (Version None)
Quarter: 2007Q3

REPORT INFORMATION
  Report Type: 
  Country: None (occurrence: None)
  Receive Date: 20070703
  Receipt Date: 20070627
  Transmission Date: 20080115
  Serious: Yes (Hospitalization)
  Sender: FDA-Public Use
  Company Number: FI-ABBOTT-07P-055-0370409-00

PATIENT
  Sex: Male

DRUGS (4)
  1. HUMIRA [Suspect]
     Indication: SERONEGATIVE ARTHRITIS
     Route: 058
     Dates: start: 20070403, end: 20070528
  2. LEFLUNOMIDE [Concomitant]
     Indication: ARTHROPATHY
     Route: 048
  3. HYDROXYCHLOROQUINE SULFATE [Concomitant]
     Indication: ARTHROPATHY
     Route: 048
  4. PREDNISONE TAB [Concomitant]
     Indication: DRUG USE FOR UNKNOWN INDICATION
     Route: 048

REACTIONS (2)
  - BLISTER [None]
  - PUSTULAR PSORIASIS [None]
